FAERS Safety Report 5716313-7 (Version None)
Quarter: 2008Q2

REPORT INFORMATION
  Report Type: 
  Country: None (occurrence: None)
  Receive Date: 20080416
  Receipt Date: 20071025
  Transmission Date: 20081010
  Serious: Yes (Other)
  Sender: FDA-Public Use
  Company Number: PHEH2007US14077

PATIENT
  Sex: Female

DRUGS (3)
  1. FORADIL [Suspect]
     Dosage: INHALATION
     Route: 055
  2. ALBUTEROL [Suspect]
     Dosage: INHALATION
     Route: 055
  3. OMEPRAZOLE [Suspect]

REACTIONS (2)
  - ABDOMINAL DISTENSION [None]
  - ASTHMA [None]
